FAERS Safety Report 9554041 (Version 1)
Quarter: 2013Q3

REPORT INFORMATION
  Report Type: Report from Study
  Country: DE (occurrence: DE)
  Receive Date: 20130925
  Receipt Date: 20130925
  Transmission Date: 20140515
  Serious: Yes (Hospitalization)
  Sender: FDA-Public Use
  Company Number: DE-GLAXOSMITHKLINE-Z0016431A

PATIENT
  Age: 38 Year
  Sex: Female
  Weight: 117 kg

DRUGS (6)
  1. TRAMETINIB [Suspect]
     Indication: MALIGNANT MELANOMA
     Dosage: 2MG PER DAY
     Route: 048
     Dates: start: 20120629
  2. DABRAFENIB [Suspect]
     Indication: MALIGNANT MELANOMA
     Dosage: 150MG TWICE PER DAY
     Route: 048
     Dates: start: 20120629
  3. TRAMAL [Concomitant]
     Indication: HEADACHE
     Dosage: 100MG TWICE PER DAY
     Route: 048
     Dates: start: 20120725, end: 20120726
  4. PASPERTIN [Concomitant]
     Indication: NAUSEA
     Dosage: 20DROP FOUR TIMES PER DAY
     Route: 048
     Dates: start: 20120724, end: 20120727
  5. FRAXIPARIN [Concomitant]
     Indication: THROMBOSIS PROPHYLAXIS
     Dosage: .4ML PER DAY
     Route: 058
     Dates: start: 20120723, end: 20120727
  6. FRAXIPARIN [Concomitant]
     Indication: THROMBOSIS PROPHYLAXIS
     Dosage: .3ML PER DAY
     Route: 058
     Dates: start: 20120728

REACTIONS (1)
  - Pyrexia [Recovered/Resolved]
